FAERS Safety Report 25504651 (Version 1)
Quarter: 2025Q3

REPORT INFORMATION
  Report Type: Spontaneous
  Country: US (occurrence: None)
  Receive Date: 20250701
  Receipt Date: 20250701
  Transmission Date: 20251020
  Serious: Yes (Life-Threatening, Hospitalization, Disabling, Other)
  Sender: FDA-CTU
  Company Number: None

PATIENT
  Age: 84 Year
  Sex: Female

DRUGS (6)
  1. METFORMIN [Suspect]
     Active Substance: METFORMIN HYDROCHLORIDE
     Indication: Type 2 diabetes mellitus
  2. METFORMIN [Concomitant]
     Active Substance: METFORMIN HYDROCHLORIDE
  3. VITAMINS [Suspect]
     Active Substance: VITAMINS
  4. MENAQUINONE 6 [Concomitant]
     Active Substance: MENAQUINONE 6
  5. MAGNESIUM GLYCINATE [Concomitant]
     Active Substance: MAGNESIUM GLYCINATE
  6. TURKEY TAIL MUSHROOM SUPPLEMENT [Concomitant]

REACTIONS (8)
  - General physical health deterioration [None]
  - Fatigue [None]
  - Cognitive disorder [None]
  - Muscular weakness [None]
  - Abdominal discomfort [None]
  - Hypoglycaemia [None]
  - Fall [None]
  - Disorientation [None]

NARRATIVE: CASE EVENT DATE: 20250314
